FAERS Safety Report 20571100 (Version 11)
Quarter: 2023Q2

REPORT INFORMATION
  Report Type: Spontaneous
  Country: US (occurrence: US)
  Receive Date: 20220309
  Receipt Date: 20230613
  Transmission Date: 20230721
  Serious: Yes (Hospitalization, Other)
  Sender: FDA-Public Use
  Company Number: US-PHARMAESSENTIA CORPORATION-US-2022-PEC-000481

PATIENT

DRUGS (17)
  1. BESREMI [Suspect]
     Active Substance: ROPEGINTERFERON ALFA-2B-NJFT
     Indication: Polycythaemia vera
     Dosage: 150 MICROGRAM, Q2W
     Route: 058
     Dates: start: 20220104
  2. BESREMI [Suspect]
     Active Substance: ROPEGINTERFERON ALFA-2B-NJFT
     Dosage: 200 MICROGRAM
     Route: 065
  3. BESREMI [Suspect]
     Active Substance: ROPEGINTERFERON ALFA-2B-NJFT
     Dosage: 150 MCG
     Route: 058
     Dates: start: 20220401
  4. BESREMI [Suspect]
     Active Substance: ROPEGINTERFERON ALFA-2B-NJFT
     Dosage: 150 MICROGRAM, Q2W
     Route: 058
  5. JAKAFI [Suspect]
     Active Substance: RUXOLITINIB
     Indication: Polycythaemia vera
     Dosage: 5 MG, BID
     Route: 048
     Dates: start: 20180522
  6. JAKAFI [Suspect]
     Active Substance: RUXOLITINIB
     Dosage: 5 MG, TID
     Route: 048
  7. BIOTIN [Concomitant]
     Active Substance: BIOTIN
     Indication: Product used for unknown indication
     Route: 065
  8. PROBIOTICS NOS [Concomitant]
     Active Substance: PROBIOTICS NOS
     Indication: Product used for unknown indication
     Route: 065
  9. GABAPENTIN [Concomitant]
     Active Substance: GABAPENTIN
     Indication: Product used for unknown indication
     Route: 065
  10. LOSARTAN POTASSIUM [Concomitant]
     Active Substance: LOSARTAN POTASSIUM
     Indication: Product used for unknown indication
     Route: 065
  11. ASPIRIN [Concomitant]
     Active Substance: ASPIRIN
     Indication: Product used for unknown indication
     Route: 065
  12. CEPHALEXIN [Concomitant]
     Active Substance: CEPHALEXIN
     Indication: Product used for unknown indication
     Route: 065
  13. FLUOXETINE HYDROCHLORIDE [Concomitant]
     Active Substance: FLUOXETINE HYDROCHLORIDE
     Indication: Product used for unknown indication
     Route: 065
  14. PHENAZOPYRIDINE HCL [Concomitant]
     Active Substance: PHENAZOPYRIDINE HYDROCHLORIDE
     Indication: Product used for unknown indication
     Route: 065
  15. TRAMADOL HCL [Concomitant]
     Active Substance: TRAMADOL HYDROCHLORIDE
     Indication: Product used for unknown indication
     Route: 065
  16. VALCHLOR [Concomitant]
     Active Substance: MECHLORETHAMINE
     Indication: Product used for unknown indication
     Route: 065
  17. KETOCONAZOLE [Concomitant]
     Active Substance: KETOCONAZOLE
     Indication: Product used for unknown indication
     Route: 065

REACTIONS (42)
  - Pulmonary embolism [Not Recovered/Not Resolved]
  - Thrombosis [Unknown]
  - Pneumothorax [Unknown]
  - Oesophageal food impaction [Unknown]
  - Disturbance in attention [Unknown]
  - Laboratory test abnormal [Not Recovered/Not Resolved]
  - Red cell distribution width abnormal [Unknown]
  - Bruxism [Unknown]
  - Drug interaction [Unknown]
  - Blister [Unknown]
  - White blood cell count increased [Not Recovered/Not Resolved]
  - Tremor [Unknown]
  - Feeling of relaxation [Unknown]
  - General physical condition abnormal [Unknown]
  - Post procedural swelling [Not Recovered/Not Resolved]
  - Red blood cell count increased [Recovering/Resolving]
  - Post procedural complication [Unknown]
  - Hypoaesthesia [Unknown]
  - Drug ineffective [Unknown]
  - Malaise [Not Recovered/Not Resolved]
  - Asthenia [Unknown]
  - Decreased appetite [Unknown]
  - Abnormal dreams [Not Recovered/Not Resolved]
  - Poor quality sleep [Unknown]
  - Injection site haemorrhage [Unknown]
  - Noninfective gingivitis [Unknown]
  - Tooth extraction [Unknown]
  - Drug intolerance [Unknown]
  - Balance disorder [Unknown]
  - Dizziness [Unknown]
  - Haemoglobin decreased [Unknown]
  - Pyrexia [Not Recovered/Not Resolved]
  - Haematocrit decreased [Recovering/Resolving]
  - Initial insomnia [Unknown]
  - Influenza like illness [Not Recovered/Not Resolved]
  - Depressed mood [Unknown]
  - Pruritus [Not Recovered/Not Resolved]
  - Pain in extremity [Not Recovered/Not Resolved]
  - Fatigue [Unknown]
  - Somnolence [Unknown]
  - Migraine [Unknown]
  - Pain [Unknown]
